FAERS Safety Report 14409894 (Version 1)
Quarter: 2018Q1

REPORT INFORMATION
  Report Type: Spontaneous
  Country: US (occurrence: US)
  Receive Date: 20180119
  Receipt Date: 20180119
  Transmission Date: 20180509
  Serious: No
  Sender: FDA-Public Use
  Company Number: US-HORIZON-PRE-0018-2018

PATIENT
  Age: 76 Year
  Sex: Female

DRUGS (13)
  1. ATIVAN 0.5 MG [Concomitant]
  2. VITAMIN D [Concomitant]
     Active Substance: CHOLECALCIFEROL
  3. CALCIUM CITRATE [Concomitant]
     Active Substance: CALCIUM CITRATE
  4. FISH OIL [Concomitant]
     Active Substance: FISH OIL
  5. VITAMIN B12 [Concomitant]
     Active Substance: CYANOCOBALAMIN
  6. BIOTIN [Concomitant]
     Active Substance: BIOTIN
  7. PRILOSEC [Concomitant]
     Active Substance: OMEPRAZOLE MAGNESIUM
  8. CRESTOR [Concomitant]
     Active Substance: ROSUVASTATIN CALCIUM
  9. COENZYME Q10 [Concomitant]
     Active Substance: UBIDECARENONE
  10. MULTIVITAMIN [Concomitant]
     Active Substance: VITAMINS
  11. RAYOS [Suspect]
     Active Substance: PREDNISONE
     Indication: POLYMYALGIA RHEUMATICA
     Dosage: CURRENT DOSE 8 MG ONCE DAILY, TAPERED BEFORE EVENT FROM 15 MG TO 9 MG AND THEN TO RECENT 8 MG
     Dates: start: 20170311
  12. MAGNESIUM [Concomitant]
     Active Substance: MAGNESIUM
  13. FOSAMAX [Concomitant]
     Active Substance: ALENDRONATE SODIUM

REACTIONS (1)
  - Sleep disorder [Recovering/Resolving]

NARRATIVE: CASE EVENT DATE: 2017
